FAERS Safety Report 11155083 (Version 2)
Quarter: 2015Q2

REPORT INFORMATION
  Report Type: Spontaneous
  Country: JP (occurrence: None)
  Receive Date: 20150529
  Receipt Date: 20150622
  Transmission Date: 20150821
  Serious: No
  Sender: FDA-Public Use
  Company Number: 2015-001079

PATIENT
  Age: 73 Year
  Sex: Female

DRUGS (2)
  1. VITAMIN D AND ANALOGUES [Concomitant]
     Active Substance: CHOLECALCIFEROL
  2. ACTONEL [Suspect]
     Active Substance: RISEDRONATE SODIUM
     Indication: OSTEOPOROSIS
     Route: 048
     Dates: start: 20150319, end: 20150319

REACTIONS (6)
  - Acute phase reaction [None]
  - Abdominal pain upper [None]
  - Pyrexia [None]
  - Myalgia [None]
  - Oropharyngeal pain [None]
  - Chest pain [None]

NARRATIVE: CASE EVENT DATE: 20150320
